FAERS Safety Report 13310263 (Version 3)
Quarter: 2017Q2

REPORT INFORMATION
  Report Type: Spontaneous
  Country: US (occurrence: US)
  Receive Date: 20170309
  Receipt Date: 20170630
  Transmission Date: 20170830
  Serious: No
  Sender: FDA-Public Use
  Company Number: US-JNJFOC-20170201415

PATIENT
  Age: 42 Year
  Sex: Male

DRUGS (4)
  1. RISPERIDONE. [Suspect]
     Active Substance: RISPERIDONE
     Indication: PRODUCT USED FOR UNKNOWN INDICATION
     Route: 048
  2. RISPERIDONE. [Suspect]
     Active Substance: RISPERIDONE
     Indication: PRODUCT USED FOR UNKNOWN INDICATION
     Route: 048
  3. ZYPREXA [Suspect]
     Active Substance: OLANZAPINE
     Indication: PRODUCT USED FOR UNKNOWN INDICATION
     Route: 048
  4. RISPERDAL [Suspect]
     Active Substance: RISPERIDONE
     Indication: SCHIZOPHRENIA
     Dosage: 1 TO 4 MG
     Route: 048
     Dates: start: 200101, end: 201107

REACTIONS (8)
  - Sedation [Unknown]
  - Drug ineffective [Unknown]
  - Gynaecomastia [Unknown]
  - Drug dose omission [Unknown]
  - Treatment noncompliance [Unknown]
  - Infertility male [Unknown]
  - Blood prolactin increased [Unknown]
  - Obesity [Unknown]

NARRATIVE: CASE EVENT DATE: 200104
